FAERS Safety Report 4424339-9 (Version None)
Quarter: 2004Q3

REPORT INFORMATION
  Report Type: 
  Country: None (occurrence: None)
  Receive Date: 20040806
  Receipt Date: 20040806
  Transmission Date: 20050211
  Serious: Yes (Disabling)
  Sender: FDA-Public Use
  Company Number: None

PATIENT
  Age: 16 Year
  Sex: Female
  Weight: 76.6579 kg

DRUGS (2)
  1. STRATTERA [Suspect]
     Indication: ATTENTION DEFICIT/HYPERACTIVITY DISORDER
     Dosage: 80 MGS  DAILY  ORAL
     Route: 048
     Dates: start: 20040408, end: 20040729
  2. CONCERTA [Suspect]

REACTIONS (1)
  - VISUAL ACUITY REDUCED [None]
